FAERS Safety Report 10481622 (Version 1)
Quarter: 2014Q3

REPORT INFORMATION
  Report Type: Spontaneous
  Country: US (occurrence: None)
  Receive Date: 20140908
  Receipt Date: 20140908
  Transmission Date: 20150326
  Serious: Yes (Other)
  Sender: FDA-Public Use
  Company Number: 390551

PATIENT
  Age: 58 Year
  Sex: Male
  Weight: 102 kg

DRUGS (5)
  1. QUINAPRIL (QUINAPRIL) [Concomitant]
  2. VICTOZA [Suspect]
     Active Substance: LIRAGLUTIDE
     Indication: TYPE 2 DIABETES MELLITUS
     Route: 058
     Dates: start: 201308, end: 201308
  3. GLIZIPIDE (GLIZIPIDE) [Concomitant]
  4. PIOGLITAZONE (PIOGLITAZONE) [Concomitant]
     Active Substance: PIOGLITAZONE
  5. HYDROCHLOROTHIAZIDE (HYDROCHLOROTHIAZIDE) [Concomitant]
     Active Substance: HYDROCHLOROTHIAZIDE

REACTIONS (1)
  - Pancreatitis [None]

NARRATIVE: CASE EVENT DATE: 201308
